FAERS Safety Report 24151042 (Version 1)
Quarter: 2024Q3

REPORT INFORMATION
  Report Type: Spontaneous
  Country: PT (occurrence: PT)
  Receive Date: 20240730
  Receipt Date: 20240730
  Transmission Date: 20241017
  Serious: Yes (Other)
  Sender: RANBAXY
  Company Number: PT-SUN PHARMACEUTICAL INDUSTRIES LTD-2024R1-459196

PATIENT
  Age: 15 Year
  Sex: Male

DRUGS (4)
  1. CLONAZEPAM [Suspect]
     Active Substance: CLONAZEPAM
     Indication: Encephalitis
     Dosage: 0.25 MILLIGRAM, BID
     Route: 065
  2. PHENOBARBITAL [Suspect]
     Active Substance: PHENOBARBITAL
     Indication: Encephalitis
     Dosage: UNK (100 MG)
     Route: 065
  3. ESLICARBAZEPINE [Suspect]
     Active Substance: ESLICARBAZEPINE
     Indication: Encephalitis
     Dosage: 1600 MILLIGRAM, DAILY
     Route: 065
  4. FELBAMATE [Suspect]
     Active Substance: FELBAMATE
     Indication: Encephalitis
     Dosage: 1800 MILLIGRAM, BID
     Route: 065

REACTIONS (3)
  - Treatment failure [Unknown]
  - Hemiparesis [Unknown]
  - Disease recurrence [Unknown]
